FAERS Safety Report 16098076 (Version 7)
Quarter: 2020Q3

REPORT INFORMATION
  Report Type: Other
  Country: AT (occurrence: AT)
  Receive Date: 20190320
  Receipt Date: 20200812
  Transmission Date: 20201102
  Serious: Yes (Hospitalization)
  Sender: FDA-Public Use
  Company Number: AT-CELLTRION INC.-2018AT022920

PATIENT

DRUGS (71)
  1. TRASTUZUMAB (UNKNOWN) [Suspect]
     Active Substance: TRASTUZUMAB
     Indication: BREAST CANCER
     Dosage: 288 MG, EVERY 3 WEEKS
     Route: 042
     Dates: start: 20180831, end: 20180831
  2. TRASTUZUMAB (UNKNOWN) [Suspect]
     Active Substance: TRASTUZUMAB
     Dosage: 384 MG, EVERY 3 WEEKS (MOST RECENT DOSE PRIOR TO THE EVENT: 19/AUG/2019)
     Route: 042
     Dates: start: 20180810
  3. ABRAXANE [Suspect]
     Active Substance: PACLITAXEL
     Dosage: MOST RECENT DOSE PRIOR TO THE EVENT: 19/OCT/2018
     Route: 042
     Dates: start: 20181005
  4. ZOFRAN [Concomitant]
     Active Substance: ONDANSETRON HYDROCHLORIDE
     Indication: NAUSEA
     Dosage: ONGOING = NOT CHECKED
     Route: 065
     Dates: start: 20180817, end: 20180907
  5. AVELOX [Concomitant]
     Active Substance: MOXIFLOXACIN HYDROCHLORIDE
     Indication: OSTEONECROSIS OF JAW
     Dosage: UNK
     Route: 065
     Dates: start: 20190919, end: 20191101
  6. PANTOLOC [PANTOPRAZOLE] [Concomitant]
     Active Substance: PANTOPRAZOLE SODIUM
     Indication: ABDOMINAL PAIN UPPER
     Dosage: UNK
     Dates: start: 20181109, end: 20191101
  7. MOLAXOLE [Concomitant]
     Active Substance: POLYETHYLENE GLYCOL 3350\POTASSIUM CHLORIDE\SODIUM BICARBONATE\SODIUM CHLORIDE
     Dosage: UNK
     Dates: start: 20191115
  8. ENTEROBENE [Concomitant]
     Dosage: UNK
     Dates: start: 20181012, end: 20181116
  9. ANTIFLAT [Concomitant]
     Dosage: UNK
     Dates: start: 20181126
  10. DUROGESIC [Concomitant]
     Active Substance: FENTANYL
     Indication: OSTEONECROSIS OF JAW
     Dosage: ONGOING = CHECKED
     Dates: start: 20191105
  11. TEMESTA [LORAZEPAM] [Concomitant]
     Active Substance: LORAZEPAM
     Dosage: ONGOING = CHECKED
     Route: 065
  12. CLAVERSAL [Concomitant]
     Active Substance: MESALAMINE
     Dosage: ONGOING = CHECKED
     Route: 065
  13. TRASTUZUMAB (UNKNOWN) [Suspect]
     Active Substance: TRASTUZUMAB
     Dosage: 384 UNK
     Route: 042
     Dates: start: 20181109, end: 20181109
  14. NOLVADEX [Suspect]
     Active Substance: TAMOXIFEN CITRATE
     Indication: BREAST CANCER METASTATIC
     Dosage: OTHER
     Route: 048
     Dates: start: 20190819, end: 20190827
  15. KONAKION [Concomitant]
     Active Substance: PHYTONADIONE
     Dosage: UNK
     Route: 065
     Dates: start: 20191115
  16. LOVENOX [Concomitant]
     Active Substance: ENOXAPARIN SODIUM
     Dosage: ONGOING = NOT CHECKED
     Dates: start: 20191104, end: 20191113
  17. HUMANALBUMIN [Concomitant]
     Active Substance: ALBUMIN HUMAN
     Indication: ASCITES
     Dosage: UNK
     Route: 065
     Dates: start: 20191108, end: 20191110
  18. XGEVA [Concomitant]
     Active Substance: DENOSUMAB
     Dosage: UNK
     Route: 065
     Dates: start: 20180817, end: 20190225
  19. XGEVA [Concomitant]
     Active Substance: DENOSUMAB
     Dosage: ONGOING = CHECKED
     Dates: start: 20180817
  20. DONTISOLON [Concomitant]
     Indication: OSTEONECROSIS OF JAW
     Dosage: UNK
     Route: 065
     Dates: start: 20190820, end: 20190820
  21. TRASTUZUMAB EMTANSINE [Suspect]
     Active Substance: ADO-TRASTUZUMAB EMTANSINE
     Indication: BREAST CANCER
     Dosage: 154 MG EVERY 3 WEEKS
     Route: 042
     Dates: start: 20190704, end: 20190704
  22. NOVALGIN (METAMIZOLE SODIUM) [Concomitant]
     Active Substance: METAMIZOLE SODIUM
     Dosage: UNK
     Dates: start: 20191104
  23. AVELOX [Concomitant]
     Active Substance: MOXIFLOXACIN HYDROCHLORIDE
     Dosage: UNK
     Route: 065
     Dates: start: 20190802, end: 20190808
  24. MYCOSTATIN [Concomitant]
     Active Substance: NYSTATIN
     Indication: MUCOSAL INFLAMMATION
     Dosage: UNK
     Route: 065
     Dates: start: 20190819
  25. CIPROXIN [CIPROFLOXACIN] [Concomitant]
     Indication: GASTROENTERITIS RADIATION
     Dosage: UNK
     Dates: start: 20181118
  26. MOLAXOLE [Concomitant]
     Active Substance: POLYETHYLENE GLYCOL 3350\POTASSIUM CHLORIDE\SODIUM BICARBONATE\SODIUM CHLORIDE
     Indication: CONSTIPATION
     Dosage: UNK
     Dates: start: 20180831, end: 20180915
  27. AMLODIBENE [Concomitant]
     Active Substance: AMLODIPINE BESYLATE
     Dosage: ONGOING = CHECKED
     Dates: start: 20180810
  28. DEXABENE [Concomitant]
     Dosage: UNK
     Dates: start: 20180810, end: 20180914
  29. VITAMINS WITH MINERALS [Concomitant]
     Active Substance: MINERALS\VITAMINS
     Dosage: UNK
     Route: 065
     Dates: start: 20180817, end: 20190615
  30. HYDROGEN [Concomitant]
     Active Substance: HYDROGEN
     Indication: OSTEONECROSIS OF JAW
     Dosage: UNK
     Route: 065
     Dates: start: 20190820, end: 20190820
  31. ABRAXANE [Suspect]
     Active Substance: PACLITAXEL
     Indication: BREAST CANCER METASTATIC
     Dosage: 142.11 MG EVERY WEEK (MOST RECENT DOSE PRIOR TO THE EVENT: 19/OCT/2018)
     Route: 042
     Dates: start: 20180928, end: 20181005
  32. PERTUZUMAB. [Suspect]
     Active Substance: PERTUZUMAB
     Dosage: 840 MG, EVERY 3 WEEKS (DOSAGE TEXT: MOST RECENT DOSE PRIOR TO THE EVENT: 31/AUG/2018)
     Route: 042
     Dates: start: 20180810
  33. LANSOBENE [Concomitant]
     Dosage: ONGOING = CHECKED
     Route: 065
     Dates: start: 20191104
  34. FENAKUT [Concomitant]
     Dosage: ONGOING = NOT CHECKED
     Dates: start: 20180810, end: 20180914
  35. ENTEROBENE [Concomitant]
     Dosage: UNK
     Dates: start: 20181127
  36. LASIX [Concomitant]
     Active Substance: FUROSEMIDE
     Indication: OEDEMA PERIPHERAL
     Dosage: UNK
     Dates: start: 20191106, end: 20191115
  37. TRITTICO [Concomitant]
     Active Substance: TRAZODONE HYDROCHLORIDE
     Dosage: DRUG REPORTED AS TRITTICO RET.
  38. KYTRIL [Concomitant]
     Active Substance: GRANISETRON HYDROCHLORIDE
     Dosage: UNK
     Route: 065
     Dates: start: 20180928, end: 20181019
  39. TRASTUZUMAB (UNKNOWN) [Suspect]
     Active Substance: TRASTUZUMAB
     Indication: HER2 POSITIVE BREAST CANCER
     Dosage: 384 MG, EVERY 3 WEEKS (MOST RECENT DOSE PRIOR TO THE EVENT: 19/AUG/2019)
     Route: 042
     Dates: start: 20180810, end: 20180810
  40. FULVESTRANT. [Suspect]
     Active Substance: FULVESTRANT
     Indication: BREAST CANCER
     Dosage: 500 MG EVERY 4 WEEKS
     Route: 030
     Dates: start: 20190919, end: 20191112
  41. PARKEMED [Concomitant]
     Active Substance: MEFENAMIC ACID
     Indication: ARTHRALGIA
     Dosage: UNK
     Route: 065
     Dates: start: 20180914
  42. PARKEMED [Concomitant]
     Active Substance: MEFENAMIC ACID
     Dosage: UNK
     Route: 065
     Dates: start: 20190615
  43. NOVALGIN (METAMIZOLE SODIUM) [Concomitant]
     Active Substance: METAMIZOLE SODIUM
     Indication: OSTEONECROSIS OF JAW
     Dosage: UNK
     Dates: start: 20181126, end: 20191103
  44. LASILACTON [Concomitant]
     Active Substance: FUROSEMIDE\SPIRONOLACTONE
     Indication: OEDEMA PERIPHERAL
     Dosage: ONGOING = CHECKED
     Dates: start: 20191109
  45. FORTECORTIN [DEXAMETHASONE] [Concomitant]
     Active Substance: DEXAMETHASONE
     Dosage: UNK
     Dates: start: 20191115
  46. FEMARA [Suspect]
     Active Substance: LETROZOLE
     Indication: BREAST CANCER METASTATIC
     Dosage: 2.5 MG, PER DAY
     Route: 048
     Dates: start: 20181029, end: 20190613
  47. PERTUZUMAB. [Suspect]
     Active Substance: PERTUZUMAB
     Dosage: 420 MG EVERY 3 WEEKS
     Route: 042
     Dates: start: 20180831
  48. AVELOX [Concomitant]
     Active Substance: MOXIFLOXACIN HYDROCHLORIDE
     Dosage: UNK
     Route: 065
     Dates: start: 20190808, end: 20190827
  49. GUTTALAX [SODIUM PICOSULFATE] [Concomitant]
     Dosage: UNK
     Dates: start: 20191115
  50. ULSAL [Concomitant]
     Active Substance: RANITIDINE HYDROCHLORIDE
     Dosage: UNK
     Dates: start: 20180810, end: 20180914
  51. OLEOVIT [DEXPANTHENOL;RETINOL] [Concomitant]
     Dosage: UNK
     Route: 065
     Dates: start: 20180831, end: 20190615
  52. ROZEX [METRONIDAZOLE] [Concomitant]
     Indication: DERMATITIS
     Dosage: UNK
     Route: 065
     Dates: start: 20180921, end: 20181005
  53. CHLORHEXIDIN [CHLORHEXIDINE] [Concomitant]
     Indication: OSTEONECROSIS OF JAW
     Dosage: UNK
     Route: 065
     Dates: start: 20190820, end: 20190820
  54. ABRAXANE [Suspect]
     Active Substance: PACLITAXEL
     Dosage: 142.11 MG, 1 WEEK
     Route: 042
     Dates: start: 20181019
  55. MYCOSTATIN [Concomitant]
     Active Substance: NYSTATIN
     Dosage: UNK
     Dates: start: 20191104, end: 20191110
  56. MYCOSTATIN [Concomitant]
     Active Substance: NYSTATIN
     Dosage: UNK
     Dates: start: 20190615, end: 20190819
  57. AMLODIBENE [Concomitant]
     Active Substance: AMLODIPINE BESYLATE
     Indication: HYPERTENSION
     Dosage: UNK
     Route: 065
     Dates: start: 20180810, end: 20190615
  58. CAPHOSOL [CALCIUM CHLORIDE;SODIUM CHLORIDE;SODIUM PHOSPHATE DIBASIC;SO [Concomitant]
     Indication: MUCOSAL INFLAMMATION
     Dosage: UNK
     Dates: start: 20180921
  59. CAPHOSOL [CALCIUM CHLORIDE;SODIUM CHLORIDE;SODIUM PHOSPHATE DIBASIC;SO [Concomitant]
     Dosage: UNK
     Route: 065
     Dates: start: 20180615, end: 20180921
  60. KYTRIL [Concomitant]
     Active Substance: GRANISETRON HYDROCHLORIDE
     Dosage: UNK
     Route: 065
     Dates: start: 20180810, end: 20180914
  61. PASPERTIN [METOCLOPRAMIDE HYDROCHLORIDE] [Concomitant]
     Active Substance: METOCLOPRAMIDE HYDROCHLORIDE
     Indication: NAUSEA
     Dosage: UNK
     Route: 065
     Dates: start: 20180801, end: 20180807
  62. CALCIDURAN [Concomitant]
     Active Substance: ASCORBIC ACID\CALCIUM PHOSPHATE\CHOLECALCIFEROL\CITRIC ACID MONOHYDRATE
     Indication: GASTROENTERITIS RADIATION
     Dosage: UNK
     Route: 065
     Dates: start: 20181117, end: 20181118
  63. PERTUZUMAB. [Suspect]
     Active Substance: PERTUZUMAB
     Indication: BREAST CANCER METASTATIC
     Dosage: 840 MG, EVERY 3 WEEKS (DOSAGE TEXT: MOST RECENT DOSE PRIOR TO THE EVENT: 31/AUG/2018)
     Route: 042
     Dates: start: 20180810, end: 20180810
  64. PERTUZUMAB. [Suspect]
     Active Substance: PERTUZUMAB
     Dosage: 840 MG, EVERY 3 WEEKS (DOSAGE TEXT: MOST RECENT DOSE PRIOR TO THE EVENT: 31/AUG/2018)
     Route: 042
     Dates: start: 20180810
  65. PARKEMED [Concomitant]
     Active Substance: MEFENAMIC ACID
     Dosage: UNK
     Route: 065
     Dates: start: 20181019
  66. ZOFRAN [Concomitant]
     Active Substance: ONDANSETRON HYDROCHLORIDE
     Dosage: ONGOING = NOT CHECKED
     Route: 065
     Dates: start: 20180907, end: 20180914
  67. SERACTIL [Concomitant]
     Active Substance: DEXIBUPROFEN
     Indication: OSTEONECROSIS OF JAW
     Dosage: UNK
     Dates: start: 20190725, end: 20191015
  68. ENTEROBENE [Concomitant]
     Indication: DIARRHOEA
     Dosage: UNK
     Dates: start: 20181012, end: 20181117
  69. VITAMINS WITH MINERALS [Concomitant]
     Active Substance: MINERALS\VITAMINS
     Dosage: UNK
     Dates: start: 20180817
  70. BUSCOPAN [Concomitant]
     Active Substance: BUTYLSCOPOLAMINE BROMIDE
     Dosage: ONGOING = NOT CHECKED
     Dates: start: 20191104, end: 20191111
  71. PASPERTIN [METOCLOPRAMIDE HYDROCHLORIDE] [Concomitant]
     Active Substance: METOCLOPRAMIDE HYDROCHLORIDE
     Dosage: ONGOING = NOT CHECKED
     Route: 065
     Dates: start: 20180831, end: 20180907

REACTIONS (15)
  - Blepharitis [Recovered/Resolved]
  - Epistaxis [Recovered/Resolved]
  - Hypertension [Unknown]
  - Infection [Not Recovered/Not Resolved]
  - Arthralgia [Recovering/Resolving]
  - Diarrhoea [Recovered/Resolved]
  - Gastroenteritis radiation [Recovered/Resolved]
  - Conjunctivitis [Recovered/Resolved]
  - Dermatitis [Recovered/Resolved]
  - Nausea [Not Recovered/Not Resolved]
  - Dyspnoea [Not Recovered/Not Resolved]
  - Constipation [Recovered/Resolved]
  - Abdominal pain upper [Not Recovered/Not Resolved]
  - Nausea [Recovered/Resolved]
  - Mucosal inflammation [Recovered/Resolved]

NARRATIVE: CASE EVENT DATE: 20180810
